FAERS Safety Report 12009171 (Version 2)
Quarter: 2016Q1

REPORT INFORMATION
  Report Type: Spontaneous
  Country: US (occurrence: US)
  Receive Date: 20160205
  Receipt Date: 20160218
  Transmission Date: 20160526
  Serious: Yes (Other)
  Sender: FDA-Public Use
  Company Number: US-BEH-2016058304

PATIENT
  Age: 18 Year
  Sex: Female
  Weight: 108 kg

DRUGS (7)
  1. HIZENTRA [Suspect]
     Active Substance: HUMAN IMMUNOGLOBULIN G
     Route: 058
  2. CHILD MOTRIN [Concomitant]
  3. HIZENTRA [Suspect]
     Active Substance: HUMAN IMMUNOGLOBULIN G
     Route: 058
  4. CHILDRENS TYLENOL [Concomitant]
     Active Substance: ACETAMINOPHEN
  5. HIZENTRA [Suspect]
     Active Substance: HUMAN IMMUNOGLOBULIN G
     Indication: IMMUNODEFICIENCY COMMON VARIABLE
     Route: 058
  6. HIZENTRA [Suspect]
     Active Substance: HUMAN IMMUNOGLOBULIN G
     Route: 058
  7. NASONEX [Concomitant]
     Active Substance: MOMETASONE FUROATE

REACTIONS (2)
  - Chronic sinusitis [Unknown]
  - Sinus operation [Unknown]

NARRATIVE: CASE EVENT DATE: 20160103
